FAERS Safety Report 9818166 (Version 1)
Quarter: 2014Q1

REPORT INFORMATION
  Report Type: Spontaneous
  Country: US (occurrence: US)
  Receive Date: 20140115
  Receipt Date: 20140115
  Transmission Date: 20141002
  Serious: Yes (Hospitalization)
  Sender: FDA-Public Use
  Company Number: US-NOVOPROD-397321

PATIENT
  Age: 34 Year
  Sex: Female
  Weight: 68.03 kg

DRUGS (1)
  1. NOVOLOG MIX 70/30 FLEXPEN [Suspect]
     Indication: TYPE 1 DIABETES MELLITUS
     Dosage: UNK
     Route: 058
     Dates: start: 2011

REACTIONS (2)
  - Infection [Recovered/Resolved]
  - Diabetic ketoacidosis [Recovered/Resolved]
